FAERS Safety Report 16223493 (Version 1)
Quarter: 2019Q2

REPORT INFORMATION
  Report Type: Spontaneous
  Country: US (occurrence: US)
  Receive Date: 20190420
  Receipt Date: 20190420
  Transmission Date: 20190711
  Serious: Yes (Other)
  Sender: FDA-Public Use
  Company Number: None

PATIENT
  Age: 77 Year
  Sex: Female
  Weight: 67.5 kg

DRUGS (2)
  1. LOSARTAN 50 MG TABS PO BID COZAAR EQUIV [Suspect]
     Active Substance: LOSARTAN
     Indication: BLOOD PRESSURE ABNORMAL
     Dosage: ?          QUANTITY:1 TABLET(S);?
     Route: 048
     Dates: start: 20140321, end: 20190322
  2. LOSARTAN 50 MG TABS PO BID COZAAR EQUIV [Suspect]
     Active Substance: LOSARTAN
     Indication: CARDIAC DISORDER
     Dosage: ?          QUANTITY:1 TABLET(S);?
     Route: 048
     Dates: start: 20140321, end: 20190322

REACTIONS (4)
  - Hepatic cancer metastatic [None]
  - Metastatic lymphoma [None]
  - Breast cancer metastatic [None]
  - Lung cancer metastatic [None]

NARRATIVE: CASE EVENT DATE: 20190321
